FAERS Safety Report 4778298-X (Version None)
Quarter: 2005Q3

REPORT INFORMATION
  Report Type: 
  Country: None (occurrence: None)
  Receive Date: 20050926
  Receipt Date: 20050104
  Transmission Date: 20060218
  Serious: Yes (Other)
  Sender: FDA-Public Use
  Company Number: US-BRISTOL-MYERS SQUIBB COMPANY-12814778

PATIENT
  Age: 44 Year
  Sex: Female

DRUGS (4)
  1. STADOL [Suspect]
     Indication: MIGRAINE
     Route: 045
     Dates: start: 20000401
  2. STADOL [Suspect]
     Indication: BACK PAIN
     Route: 045
     Dates: start: 20000401
  3. STADOL [Suspect]
     Indication: BACK PAIN
     Route: 030
     Dates: start: 19960308
  4. STADOL [Suspect]
     Indication: INJURY
     Route: 030
     Dates: start: 19960308

REACTIONS (1)
  - DEPENDENCE [None]
